FAERS Safety Report 7983407 (Version 9)
Quarter: 2015Q3

REPORT INFORMATION
  Report Type: Spontaneous
  Country: US (occurrence: US)
  Receive Date: 20110609
  Receipt Date: 20150827
  Transmission Date: 20151125
  Serious: Yes (Hospitalization, Other)
  Sender: FDA-Public Use
  Company Number: US-ASTRAZENECA-2010SE48550

PATIENT
  Age: 20819 Day
  Sex: Male
  Weight: 85.3 kg

DRUGS (16)
  1. CRESTOR [Suspect]
     Active Substance: ROSUVASTATIN CALCIUM
     Indication: BLOOD CHOLESTEROL ABNORMAL
     Route: 048
  2. CRESTOR [Suspect]
     Active Substance: ROSUVASTATIN CALCIUM
     Indication: BLOOD CHOLESTEROL ABNORMAL
     Route: 048
  3. VALIUM [Concomitant]
     Active Substance: DIAZEPAM
     Indication: ANXIETY
     Dosage: EITHER 2.5 MG OR 5 MG, AS NEEDED
  4. ZETIA [Concomitant]
     Active Substance: EZETIMIBE
  5. BYSTOLIC [Concomitant]
     Active Substance: NEBIVOLOL HYDROCHLORIDE
  6. NORCO [Concomitant]
     Active Substance: ACETAMINOPHEN\HYDROCODONE BITARTRATE
     Indication: PAIN
     Dosage: AS NEEDED
  7. CRESTOR [Suspect]
     Active Substance: ROSUVASTATIN CALCIUM
     Indication: BLOOD CHOLESTEROL ABNORMAL
     Route: 048
  8. LASIX [Concomitant]
     Active Substance: FUROSEMIDE
     Indication: DIURETIC THERAPY
  9. PROTONIX [Concomitant]
     Active Substance: PANTOPRAZOLE SODIUM
     Indication: HYPERCHLORHYDRIA
  10. CRESTOR [Suspect]
     Active Substance: ROSUVASTATIN CALCIUM
     Indication: BLOOD CHOLESTEROL ABNORMAL
     Route: 048
  11. AVAPRO [Concomitant]
     Active Substance: IRBESARTAN
     Indication: BLOOD PRESSURE ABNORMAL
     Route: 048
  12. AVALIDE [Concomitant]
     Active Substance: HYDROCHLOROTHIAZIDE\IRBESARTAN
     Dosage: 300/12.5 MG EVERY DAY
  13. AMBIEN [Concomitant]
     Active Substance: ZOLPIDEM TARTRATE
     Indication: SLEEP DISORDER
     Route: 048
     Dates: start: 2014
  14. CRESTOR [Suspect]
     Active Substance: ROSUVASTATIN CALCIUM
     Indication: BLOOD CHOLESTEROL ABNORMAL
     Route: 048
  15. PLAVIX [Concomitant]
     Active Substance: CLOPIDOGREL BISULFATE
  16. TYLENOL [Concomitant]
     Active Substance: ACETAMINOPHEN
     Indication: PAIN
     Dosage: 10/325 AS NEEDED

REACTIONS (25)
  - Coronary artery occlusion [Unknown]
  - Urine analysis abnormal [Unknown]
  - Coronary artery disease [Unknown]
  - Fall [Unknown]
  - Myocardial infarction [Unknown]
  - Hypertension [Unknown]
  - Hypotension [Unknown]
  - Weight decreased [Unknown]
  - Abdominal discomfort [Unknown]
  - Tooth fracture [Unknown]
  - Back pain [Unknown]
  - Dyslexia [Unknown]
  - Visual impairment [Unknown]
  - Asthma [Unknown]
  - Dysuria [Unknown]
  - Haemorrhage [Unknown]
  - Intentional product misuse [Unknown]
  - Rotator cuff syndrome [Unknown]
  - Carotid artery stenosis [Unknown]
  - Hyperlipidaemia [Unknown]
  - Muscle spasms [Unknown]
  - Neurofibromatosis [Unknown]
  - Aortic rupture [Recovered/Resolved]
  - Cerebrovascular disorder [Unknown]
  - Panic attack [Unknown]

NARRATIVE: CASE EVENT DATE: 20140705
